FAERS Safety Report 9193392 (Version 1)
Quarter: 2013Q1

REPORT INFORMATION
  Report Type: Spontaneous
  Country: US (occurrence: US)
  Receive Date: 20130327
  Receipt Date: 20130327
  Transmission Date: 20140127
  Serious: Yes (Other)
  Sender: FDA-Public Use
  Company Number: US-ROCHE-1202181

PATIENT
  Age: 60 Year
  Sex: Female

DRUGS (2)
  1. TRASTUZUMAB [Suspect]
     Indication: BREAST CANCER
     Route: 042
     Dates: start: 20120614, end: 20130313
  2. TRASTUZUMAB [Suspect]
     Indication: BREAST CANCER

REACTIONS (4)
  - Breast cancer recurrent [Not Recovered/Not Resolved]
  - Treatment failure [Not Recovered/Not Resolved]
  - Metastases to lung [Not Recovered/Not Resolved]
  - Disease progression [Unknown]
